FAERS Safety Report 9868817 (Version 2)
Quarter: 2014Q1

REPORT INFORMATION
  Report Type: Spontaneous
  Country: FR (occurrence: FR)
  Receive Date: 20140204
  Receipt Date: 20140206
  Transmission Date: 20141002
  Serious: No
  Sender: FDA-Public Use
  Company Number: FR-RB-063056-14

PATIENT
  Sex: Male

DRUGS (1)
  1. SUBUTEX [Suspect]
     Indication: OFF LABEL USE
     Dosage: DOSING DETAILS UNKNOWN
     Route: 065

REACTIONS (1)
  - Drug diversion [Recovered/Resolved]
